FAERS Safety Report 11666528 (Version 4)
Quarter: 2015Q4

REPORT INFORMATION
  Report Type: Spontaneous
  Country: US (occurrence: US)
  Receive Date: 20151027
  Receipt Date: 20151028
  Transmission Date: 20160304
  Serious: Yes (Other)
  Sender: FDA-Public Use
  Company Number: CHPA2015US012529

PATIENT
  Age: 76 Year
  Sex: Female

DRUGS (3)
  1. VOLTAREN [Suspect]
     Active Substance: DICLOFENAC SODIUM
     Indication: HYPOAESTHESIA
  2. VOLTAREN [Suspect]
     Active Substance: DICLOFENAC SODIUM
     Indication: NEUROPATHY PERIPHERAL
  3. VOLTAREN [Suspect]
     Active Substance: DICLOFENAC SODIUM
     Indication: ARTHRITIS
     Dosage: A DAB, BID
     Route: 061
     Dates: start: 2014, end: 201507

REACTIONS (11)
  - Breast mass [Unknown]
  - Feeling hot [Not Recovered/Not Resolved]
  - Product use issue [Unknown]
  - Inappropriate schedule of drug administration [Unknown]
  - Breast pain [Unknown]
  - Libido disorder [Not Recovered/Not Resolved]
  - Hypoaesthesia [Unknown]
  - Drug administered at inappropriate site [Unknown]
  - Arthritis [Unknown]
  - Visual impairment [Unknown]
  - Therapeutic response unexpected [Unknown]

NARRATIVE: CASE EVENT DATE: 2015
